FAERS Safety Report 21446017 (Version 1)
Quarter: 2022Q4

REPORT INFORMATION
  Report Type: Spontaneous
  Country: US (occurrence: None)
  Receive Date: 20221011
  Receipt Date: 20221011
  Transmission Date: 20230113
  Serious: Yes (Hospitalization)
  Sender: FDA-Public Use
  Company Number: None

PATIENT
  Age: 50 Year
  Sex: Female
  Weight: 79.65 kg

DRUGS (10)
  1. NORETHINDRONE [Suspect]
     Active Substance: NORETHINDRONE
     Indication: Endometriosis
     Dosage: OTHER QUANTITY : 1 TABLET(S);?
     Route: 048
     Dates: start: 20200905, end: 20221004
  2. APIXABAN [Concomitant]
     Active Substance: APIXABAN
  3. TIMOLOL MALEATE [Concomitant]
     Active Substance: TIMOLOL MALEATE
  4. LATANOPROST [Concomitant]
     Active Substance: LATANOPROST
  5. GABAPENTIN [Concomitant]
     Active Substance: GABAPENTIN
  6. ALBUTEROL SULFATE [Concomitant]
     Active Substance: ALBUTEROL SULFATE
  7. IBUPROFEN [Concomitant]
     Active Substance: IBUPROFEN
  8. FLUOXETINE [Concomitant]
     Active Substance: FLUOXETINE HYDROCHLORIDE
  9. ALPRAZOLAM [Concomitant]
  10. FLUTICASONE PROPIONATE [Concomitant]
     Active Substance: FLUTICASONE PROPIONATE

REACTIONS (2)
  - Portal vein thrombosis [None]
  - Therapy cessation [None]

NARRATIVE: CASE EVENT DATE: 20221003
